FAERS Safety Report 4907032-5 (Version None)
Quarter: 2006Q1

REPORT INFORMATION
  Report Type: 
  Country: None (occurrence: None)
  Receive Date: 20060207
  Receipt Date: 20060124
  Transmission Date: 20060701
  Serious: Yes (Death)
  Sender: FDA-Public Use
  Company Number: 2005EN000219

PATIENT
  Age: 12 Year
  Sex: Male

DRUGS (1)
  1. ADAGEN [Suspect]
     Indication: ENZYME ABNORMALITY

REACTIONS (2)
  - BONE MARROW TRANSPLANT [None]
  - NON-HODGKIN'S LYMPHOMA STAGE II [None]
